FAERS Safety Report 15408570 (Version 1)
Quarter: 2018Q3

REPORT INFORMATION
  Report Type: Spontaneous
  Country: US (occurrence: US)
  Receive Date: 20180920
  Receipt Date: 20180920
  Transmission Date: 20181010
  Serious: Yes (Other)
  Sender: FDA-Public Use
  Company Number: US-TESARO INC.-TS50-00411-2018USA

PATIENT
  Sex: Female

DRUGS (5)
  1. TIPIRACIL [Concomitant]
     Active Substance: TIPIRACIL
     Indication: ADENOCARCINOMA OF COLON
     Route: 065
  2. VARUBI [Suspect]
     Active Substance: ROLAPITANT
     Indication: NAUSEA
     Dosage: 180 MG, 1?2 HOURS PRIOR TO CHEMO
     Route: 048
     Dates: start: 20180523
  3. OXALIPLATIN. [Suspect]
     Active Substance: OXALIPLATIN
     Indication: ADENOCARCINOMA OF COLON
     Route: 065
  4. VARUBI [Suspect]
     Active Substance: ROLAPITANT
     Indication: VOMITING
  5. TRIFLURIDINE. [Concomitant]
     Active Substance: TRIFLURIDINE
     Indication: ADENOCARCINOMA OF COLON
     Route: 065

REACTIONS (14)
  - Eye swelling [Unknown]
  - Hypersensitivity [Unknown]
  - Wheezing [Unknown]
  - Haemoglobin decreased [Unknown]
  - Headache [Unknown]
  - Carcinoembryonic antigen decreased [Unknown]
  - Diarrhoea [Unknown]
  - Cough [Unknown]
  - Gastrooesophageal reflux disease [Unknown]
  - Sinus operation [Unknown]
  - Neuropathy peripheral [Unknown]
  - Haematocrit decreased [Unknown]
  - Blood pressure systolic increased [Unknown]
  - Nausea [Unknown]
